FAERS Safety Report 21032601 (Version 8)
Quarter: 2023Q1

REPORT INFORMATION
  Report Type: Spontaneous
  Country: US (occurrence: US)
  Receive Date: 20220701
  Receipt Date: 20230124
  Transmission Date: 20230417
  Serious: No
  Sender: FDA-Public Use
  Company Number: US-BIOGEN-2022BI01130925

PATIENT
  Age: 58 Year
  Sex: Female

DRUGS (8)
  1. AVONEX PEN [Suspect]
     Active Substance: INTERFERON BETA-1A
     Indication: Multiple sclerosis
     Route: 050
     Dates: start: 20220608
  2. AVONEX PEN [Suspect]
     Active Substance: INTERFERON BETA-1A
     Route: 050
     Dates: start: 20220622
  3. AVONEX PEN [Suspect]
     Active Substance: INTERFERON BETA-1A
     Route: 050
     Dates: start: 20220713
  4. AVONEX PEN [Suspect]
     Active Substance: INTERFERON BETA-1A
  5. AVONEX [Suspect]
     Active Substance: INTERFERON BETA-1A
     Indication: Multiple sclerosis
     Dosage: WEEK 1
     Route: 050
     Dates: start: 20220615
  6. AVONEX [Suspect]
     Active Substance: INTERFERON BETA-1A
     Dosage: WEEK 2
     Route: 050
  7. AVONEX [Suspect]
     Active Substance: INTERFERON BETA-1A
     Dosage: WEEK 3
     Route: 050
  8. AVONEX [Suspect]
     Active Substance: INTERFERON BETA-1A
     Dosage: WEEK 4
     Route: 050

REACTIONS (8)
  - Product dispensing error [Unknown]
  - Device use issue [Unknown]
  - Product dose omission issue [Unknown]
  - Dehydration [Not Recovered/Not Resolved]
  - Weight increased [Not Recovered/Not Resolved]
  - Fat tissue increased [Unknown]
  - Hemiparesis [Unknown]
  - Visual impairment [Unknown]

NARRATIVE: CASE EVENT DATE: 20220601
